FAERS Safety Report 7627763-6 (Version None)
Quarter: 2011Q3

REPORT INFORMATION
  Report Type: 
  Country: None (occurrence: None)
  Receive Date: 20110721
  Receipt Date: 20110719
  Transmission Date: 20111222
  Serious: Yes (Hospitalization)
  Sender: FDA-Public Use
  Company Number: NL-PFIZER INC-2011133326

PATIENT
  Age: 57 Year
  Sex: Female
  Weight: 82 kg

DRUGS (9)
  1. ACETYLSALICYLIC ACID [Concomitant]
     Dosage: 80 MG, 1X/DAY
     Dates: start: 20110129
  2. ISOSORBIDE DINITRATE [Concomitant]
     Dosage: UNK
     Dates: start: 20110513
  3. RAMIPRIL [Concomitant]
     Dosage: 2.5 MG, 1X/DAY
     Dates: start: 20110129
  4. SIMVASTATIN [Concomitant]
     Dosage: 20 MG, 1X/DAY
     Dates: start: 20110129
  5. VARENICLINE TARTRATE [Suspect]
     Indication: SMOKING CESSATION THERAPY
     Dosage: UNK
     Dates: start: 20110308, end: 20110527
  6. METAMUCIL-2 [Concomitant]
     Dosage: UNK
     Dates: start: 20110308
  7. NITROLINGUAL [Concomitant]
     Dosage: UNK
     Dates: start: 20110409
  8. PLAVIX [Concomitant]
     Dosage: 75 MG, 1X/DAY
     Dates: start: 20110129
  9. DOVOBET [Concomitant]
     Dosage: UNK
     Dates: start: 20110210

REACTIONS (3)
  - CHEST PAIN [None]
  - SLEEP DISORDER [None]
  - ANAL ULCER [None]
